FAERS Safety Report 19084068 (Version 1)
Quarter: 2021Q2

REPORT INFORMATION
  Report Type: Spontaneous
  Country: CN (occurrence: CN)
  Receive Date: 20210401
  Receipt Date: 20210401
  Transmission Date: 20210717
  Serious: Yes (Other)
  Sender: FDA-Public Use
  Company Number: CN-BAXTER-2021BAX006053

PATIENT
  Age: 49 Year
  Sex: Female
  Weight: 54.5 kg

DRUGS (7)
  1. 5% GLUCOSE  INJECTION [Suspect]
     Active Substance: DEXTROSE
     Dosage: 5% GS + XICUN 160 MG
     Route: 041
     Dates: start: 20210226, end: 20210226
  2. RECOMBINANT HUMAN GRANULOCYTE COLONY?STIMULATING FACTOR [Concomitant]
     Active Substance: GRANULOCYTE COLONY-STIMULATING FACTOR NOS
     Indication: PROPHYLAXIS
     Route: 058
     Dates: start: 20210302, end: 20210303
  3. 5% GLUCOSE  INJECTION [Suspect]
     Active Substance: DEXTROSE
     Indication: MEDICATION DILUTION
     Dosage: 5% GS + PIRARUBICIN HYDROCHLORIDE 90 MG
     Route: 041
     Dates: start: 20210226, end: 20210226
  4. ENDOXAN [Suspect]
     Active Substance: CYCLOPHOSPHAMIDE
     Indication: BREAST NEOPLASM
     Dosage: CYCLOPHOSPHAMIDE + 0.9% NORMAL SALINE (NS) 250 ML
     Route: 041
     Dates: start: 20210226, end: 20210226
  5. PIRARUBICIN HYDROCHLORIDE [Suspect]
     Active Substance: PIRARUBICIN HYDROCHLORIDE
     Indication: BREAST NEOPLASM
     Dosage: PIRARUBICIN HYDROCHLORIDE + GS 250 ML
     Route: 041
     Dates: start: 20210226, end: 20210226
  6. 0.9% SODIUM CHLORIDE INJECTION [Suspect]
     Active Substance: SODIUM CHLORIDE
     Indication: MEDICATION DILUTION
     Dosage: 0.9% NS + CYCLOPHOSPHAMIDE 840 MG
     Route: 041
     Dates: start: 20210226, end: 20210226
  7. XICUN [Suspect]
     Active Substance: DOCETAXEL
     Indication: BREAST NEOPLASM
     Dosage: XICUN + GLUCOSE (GS) 500 ML
     Route: 041
     Dates: start: 20210226, end: 20210226

REACTIONS (2)
  - White blood cell count decreased [Recovered/Resolved]
  - Myelosuppression [Recovering/Resolving]

NARRATIVE: CASE EVENT DATE: 20210306
